FAERS Safety Report 15992779 (Version 1)
Quarter: 2019Q1

REPORT INFORMATION
  Report Type: Report from Study
  Country: US (occurrence: US)
  Receive Date: 20190221
  Receipt Date: 20190221
  Transmission Date: 20190418
  Serious: No
  Sender: FDA-Public Use
  Company Number: PHHY2018US136965

PATIENT
  Age: 41 Year
  Sex: Female

DRUGS (1)
  1. GILENYA [Suspect]
     Active Substance: FINGOLIMOD HYDROCHLORIDE
     Indication: MULTIPLE SCLEROSIS
     Dosage: UNK, QD
     Route: 048

REACTIONS (9)
  - Abdominal discomfort [Unknown]
  - Melanocytic naevus [Recovered/Resolved]
  - Fibrous histiocytoma [Recovered/Resolved]
  - Lymphocyte count decreased [Unknown]
  - Fatigue [Unknown]
  - Folliculitis [Recovered/Resolved]
  - Peripheral coldness [Unknown]
  - Arthralgia [Unknown]
  - Haemangioma of skin [Recovered/Resolved]

NARRATIVE: CASE EVENT DATE: 20140519
